FAERS Safety Report 5017561-4 (Version None)
Quarter: 2006Q2

REPORT INFORMATION
  Report Type: 
  Country: None (occurrence: None)
  Receive Date: 20060601
  Receipt Date: 20060601
  Transmission Date: 20061013
  Serious: Yes (Hospitalization)
  Sender: FDA-Public Use
  Company Number: None

PATIENT
  Age: 35 Year
  Sex: Male
  Weight: 80.4 kg

DRUGS (12)
  1. DEPAKOTE [Suspect]
     Indication: CONVULSION
     Dosage: 1000 MG TWICE DAILY PO
     Route: 048
     Dates: start: 20060312, end: 20060518
  2. DEPAKOTE [Suspect]
     Indication: SCHIZOAFFECTIVE DISORDER
     Dosage: 1000 MG TWICE DAILY PO
     Route: 048
     Dates: start: 20060312, end: 20060518
  3. KEPPRA [Concomitant]
  4. CLONAZEPAM [Concomitant]
  5. SEROQUEL [Concomitant]
  6. LIBRIUM [Concomitant]
  7. LITHIUM CARBONATE [Concomitant]
  8. SENNA [Concomitant]
  9. DETROL [Concomitant]
  10. VITAMIN E [Concomitant]
  11. BENADRYL [Concomitant]
  12. METAMUCIL [Concomitant]

REACTIONS (2)
  - PANCREATIC NECROSIS [None]
  - PANCREATITIS [None]
